FAERS Safety Report 21531237 (Version 1)
Quarter: 2022Q4

REPORT INFORMATION
  Report Type: Spontaneous
  Country: US (occurrence: None)
  Receive Date: 20221028
  Receipt Date: 20221028
  Transmission Date: 20230113
  Serious: Yes (Other)
  Sender: FDA-Public Use
  Company Number: None

PATIENT
  Age: 79 Year
  Sex: Male
  Weight: 89.81 kg

DRUGS (1)
  1. LISINOPRIL [Suspect]
     Active Substance: LISINOPRIL
     Indication: Hypertension
     Dosage: 2.5 MG EVERY DAY PO
     Route: 048
     Dates: start: 20170228, end: 20220711

REACTIONS (1)
  - Angioedema [None]

NARRATIVE: CASE EVENT DATE: 20220728
